FAERS Safety Report 10613305 (Version 1)
Quarter: 2014Q4

REPORT INFORMATION
  Report Type: Report from Study
  Country: US (occurrence: US)
  Receive Date: 20141128
  Receipt Date: 20141128
  Transmission Date: 20150529
  Serious: Yes (Other)
  Sender: FDA-Public Use
  Company Number: US-AMGEN INC.-USASL2014092194

PATIENT
  Age: 72 Year
  Sex: Female

DRUGS (2)
  1. SYNVISC [Concomitant]
     Active Substance: HYALURONATE SODIUM
     Dosage: UNK UNK, Q6MO
     Route: 065
  2. ENBREL [Suspect]
     Active Substance: ETANERCEPT
     Indication: PSORIASIS
     Dosage: 50 MG, QWK
     Route: 065
     Dates: start: 20140605

REACTIONS (2)
  - Arthropathy [Not Recovered/Not Resolved]
  - Synovial cyst [Not Recovered/Not Resolved]
